FAERS Safety Report 9466596 (Version 1)
Quarter: 2013Q3

REPORT INFORMATION
  Report Type: Spontaneous
  Country: CN (occurrence: CN)
  Receive Date: 20130820
  Receipt Date: 20130820
  Transmission Date: 20140515
  Serious: Yes (Other)
  Sender: FDA-Public Use
  Company Number: CN-PFIZER INC-2013238498

PATIENT
  Sex: Male

DRUGS (3)
  1. ADRIAMYCIN [Suspect]
     Indication: GASTRIC CANCER
     Dosage: 20 MG, UNK
     Route: 042
  2. FLUOROURACIL [Concomitant]
     Indication: GASTRIC CANCER
     Dosage: UNK
  3. MITOMYCIN [Concomitant]
     Indication: GASTRIC CANCER
     Dosage: UNK

REACTIONS (1)
  - Anaphylactic shock [Recovered/Resolved]
